FAERS Safety Report 14953353 (Version 2)
Quarter: 2018Q2

REPORT INFORMATION
  Report Type: Spontaneous
  Country: MX (occurrence: MX)
  Receive Date: 20180530
  Receipt Date: 20180531
  Transmission Date: 20180711
  Serious: Yes (Other)
  Sender: FDA-Public Use
  Company Number: MX-VIIV HEALTHCARE LIMITED-MX2018GSK096365

PATIENT
  Age: 32 Year
  Sex: Male

DRUGS (7)
  1. TACROLIMUS. [Suspect]
     Active Substance: TACROLIMUS
     Indication: HIV INFECTION
  2. ABACAVIR. [Suspect]
     Active Substance: ABACAVIR
     Indication: HIV INFECTION
  3. MYCOPHENOLATE MOFETIL. [Suspect]
     Active Substance: MYCOPHENOLATE MOFETIL
     Indication: HIV INFECTION
  4. RITONAVIR. [Suspect]
     Active Substance: RITONAVIR
     Indication: HIV INFECTION
  5. LOPINAVIR [Suspect]
     Active Substance: LOPINAVIR
     Indication: HIV INFECTION
  6. PREDNISOLONE. [Suspect]
     Active Substance: PREDNISOLONE
     Indication: HIV INFECTION
  7. RALTEGRAVIR. [Suspect]
     Active Substance: RALTEGRAVIR
     Indication: HIV INFECTION

REACTIONS (7)
  - Pneumonia [Unknown]
  - Urethritis gonococcal [Unknown]
  - Pneumatosis [Recovered/Resolved]
  - Therapy cessation [Unknown]
  - Clostridium difficile colitis [Unknown]
  - Meningitis aseptic [Unknown]
  - Transplant rejection [Unknown]
